FAERS Safety Report 6361576-0 (Version None)
Quarter: 2009Q3

REPORT INFORMATION
  Report Type: 
  Country: None (occurrence: None)
  Receive Date: 20090915
  Receipt Date: 20090915
  Transmission Date: 20100115
  Serious: Yes (Other)
  Sender: FDA-Public Use
  Company Number: None

PATIENT
  Sex: Female
  Weight: 99.7913 kg

DRUGS (2)
  1. VENLAFAXINE [Suspect]
     Indication: DEPRESSION
     Dosage: 150MG 1 TABLET DAILY PO
     Route: 048
     Dates: start: 20090815, end: 20090908
  2. VENLAFAXINE [Suspect]

REACTIONS (6)
  - DIZZINESS [None]
  - DRUG WITHDRAWAL SYNDROME [None]
  - MEDICATION RESIDUE [None]
  - NAUSEA [None]
  - PRODUCT QUALITY ISSUE [None]
  - VERTIGO [None]
